FAERS Safety Report 6380383-6 (Version None)
Quarter: 2009Q3

REPORT INFORMATION
  Report Type: 
  Country: None (occurrence: None)
  Receive Date: 20090929
  Receipt Date: 20090922
  Transmission Date: 20100115
  Serious: Yes (Death, Hospitalization)
  Sender: FDA-Public Use
  Company Number: FR-ELI_LILLY_AND_COMPANY-FR200905004925

PATIENT
  Sex: Male

DRUGS (2)
  1. GEMZAR [Suspect]
     Indication: PARAGANGLION NEOPLASM MALIGNANT
     Route: 042
     Dates: start: 20090218, end: 20090401
  2. CARBOPLATIN [Concomitant]
     Indication: PARAGANGLION NEOPLASM MALIGNANT
     Route: 042
     Dates: start: 20090201, end: 20090301

REACTIONS (4)
  - DRUG ERUPTION [None]
  - HYPOVOLAEMIC SHOCK [None]
  - LIVER DISORDER [None]
  - RENAL FAILURE [None]
